FAERS Safety Report 22166788 (Version 6)
Quarter: 2024Q3

REPORT INFORMATION
  Report Type: Spontaneous
  Country: US (occurrence: US)
  Receive Date: 20230403
  Receipt Date: 20240827
  Transmission Date: 20241017
  Serious: Yes (Hospitalization, Other)
  Sender: PFIZER
  Company Number: US-PFIZER INC-202300136921

PATIENT
  Age: 72 Year
  Sex: Female

DRUGS (4)
  1. NALBUPHINE HYDROCHLORIDE [Suspect]
     Active Substance: NALBUPHINE HYDROCHLORIDE
     Indication: Pain
     Dosage: 20 MG/ML, AS NEEDED (200MG/10ML VIAL AS NEEDED)
     Dates: start: 1983
  2. NALBUPHINE HYDROCHLORIDE [Suspect]
     Active Substance: NALBUPHINE HYDROCHLORIDE
     Indication: Back disorder
     Dosage: 20 MG, EVERY 6 HOURS IF NEEDED
  3. WARFARIN [Suspect]
     Active Substance: WARFARIN
     Indication: Artificial heart implant
     Dosage: 6 MG, 1X/DAY
  4. WARFARIN [Suspect]
     Active Substance: WARFARIN
     Indication: Aortic valve disease

REACTIONS (4)
  - Cerebrovascular accident [Unknown]
  - International normalised ratio decreased [Unknown]
  - Brain operation [Unknown]
  - Hypokinesia [Unknown]

NARRATIVE: CASE EVENT DATE: 20221118
